FAERS Safety Report 20046089 (Version 1)
Quarter: 2021Q4

REPORT INFORMATION
  Report Type: Spontaneous
  Country: US (occurrence: None)
  Receive Date: 20211108
  Receipt Date: 20211108
  Transmission Date: 20220303
  Serious: No
  Sender: FDA-Public Use
  Company Number: None

PATIENT

DRUGS (2)
  1. METHOTREXATE [Suspect]
     Active Substance: METHOTREXATE
  2. DEVICE [Suspect]
     Active Substance: DEVICE

REACTIONS (4)
  - Product preparation error [None]
  - Incorrect dose administered by device [None]
  - Accidental underdose [None]
  - Device information output issue [None]
